FAERS Safety Report 8622004-5 (Version None)
Quarter: 2012Q3

REPORT INFORMATION
  Report Type: 
  Country: None (occurrence: None)
  Receive Date: 20120823
  Receipt Date: 20120823
  Transmission Date: 20120928
  Serious: Yes (Other)
  Sender: FDA-Public Use
  Company Number: None

PATIENT
  Sex: Female
  Weight: 73.0291 kg

DRUGS (1)
  1. ESCITALOPRAM [Suspect]
     Dosage: 1.5 TABS, DAILY, PO
     Route: 048

REACTIONS (5)
  - PRODUCT SUBSTITUTION ISSUE [None]
  - DYSPHAGIA [None]
  - ANXIETY [None]
  - THROAT TIGHTNESS [None]
  - BLOOD PRESSURE INCREASED [None]
